FAERS Safety Report 9235290 (Version 3)
Quarter: 2013Q3

REPORT INFORMATION
  Report Type: Spontaneous
  Country: US (occurrence: US)
  Receive Date: 20130417
  Receipt Date: 20130807
  Transmission Date: 20140515
  Serious: No
  Sender: FDA-Public Use
  Company Number: US-BIOGENIDEC-2013BI032423

PATIENT
  Age: 38 Year
  Sex: Female

DRUGS (1)
  1. TYSABRI [Suspect]
     Indication: MULTIPLE SCLEROSIS
     Route: 042
     Dates: start: 20120510, end: 20130319

REACTIONS (6)
  - Infusion related reaction [Unknown]
  - Blood pressure decreased [Unknown]
  - Rash [Unknown]
  - Dizziness [Unknown]
  - Urticaria [Not Recovered/Not Resolved]
  - Adverse reaction [Not Recovered/Not Resolved]
